FAERS Safety Report 18310252 (Version 1)
Quarter: 2020Q3

REPORT INFORMATION
  Report Type: Spontaneous
  Country: US (occurrence: US)
  Receive Date: 20200924
  Receipt Date: 20200924
  Transmission Date: 20201103
  Serious: Yes (Other)
  Sender: FDA-Public Use
  Company Number: US-PURDUE-USA-2020-0167590

PATIENT

DRUGS (1)
  1. OXYCONTIN [Suspect]
     Active Substance: OXYCODONE HYDROCHLORIDE
     Indication: BACK INJURY
     Route: 048

REACTIONS (20)
  - Drug tolerance [Unknown]
  - Fear [Unknown]
  - Blood testosterone decreased [Unknown]
  - Memory impairment [Unknown]
  - Lethargy [Unknown]
  - Adverse drug reaction [Unknown]
  - Mental disorder [Unknown]
  - Cardiac disorder [Unknown]
  - Emotional distress [Unknown]
  - Diarrhoea [Unknown]
  - General physical health deterioration [Unknown]
  - Insomnia [Unknown]
  - Drug withdrawal syndrome [Unknown]
  - Sexual dysfunction [Unknown]
  - Illness [Unknown]
  - Vomiting [Unknown]
  - Drug dependence [Unknown]
  - Muscle spasms [Unknown]
  - Anxiety [Unknown]
  - Nausea [Unknown]
